FAERS Safety Report 15722948 (Version 1)
Quarter: 2018Q4

REPORT INFORMATION
  Report Type: Spontaneous
  Country: US (occurrence: US)
  Receive Date: 20181214
  Receipt Date: 20181214
  Transmission Date: 20190205
  Serious: No
  Sender: FDA-Public Use
  Company Number: US-ADAPT PHARMA INC-2018ADP00068

PATIENT
  Sex: Male

DRUGS (3)
  1. UNKNOWN (PRESUMED) OPIATE DRUG(S) [Suspect]
     Active Substance: UNSPECIFIED INGREDIENT
     Dosage: UNK, UNK
     Route: 065
  2. HEROIN [Suspect]
     Active Substance: DIAMORPHINE
     Dosage: UNK, UNK
     Route: 065
  3. NARCAN [Suspect]
     Active Substance: NALOXONE HYDROCHLORIDE
     Indication: OVERDOSE
     Dosage: 4 MG, ONCE IN THE LEFT NOSTRIL
     Route: 045

REACTIONS (2)
  - Oral discharge [Unknown]
  - Aggression [Unknown]
